FAERS Safety Report 6023781-2 (Version None)
Quarter: 2008Q4

REPORT INFORMATION
  Report Type: 
  Country: None (occurrence: None)
  Receive Date: 20081230
  Receipt Date: 20081222
  Transmission Date: 20090506
  Serious: Yes (Other)
  Sender: FDA-Public Use
  Company Number: US-AMGEN-KDL323241

PATIENT
  Sex: Male
  Weight: 76.3 kg

DRUGS (2)
  1. ENBREL [Suspect]
     Indication: PSORIATIC ARTHROPATHY
     Route: 058
     Dates: start: 20080221, end: 20080929
  2. ENBREL [Suspect]
     Indication: PSORIASIS

REACTIONS (2)
  - BLOOD IRON INCREASED [None]
  - LIVER FUNCTION TEST ABNORMAL [None]
